FAERS Safety Report 6567322-X (Version None)
Quarter: 2010Q1

REPORT INFORMATION
  Report Type: 
  Country: None (occurrence: None)
  Receive Date: 20100202
  Receipt Date: 20100121
  Transmission Date: 20100710
  Serious: Yes (Other)
  Sender: FDA-Public Use
  Company Number: PHHY2010JP03134

PATIENT
  Sex: Male
  Weight: 57 kg

DRUGS (5)
  1. DIOVAN [Suspect]
     Dosage: 80 MG, BID
     Route: 048
     Dates: start: 20080204, end: 20090713
  2. DICHLOTRIDE [Concomitant]
     Indication: HYPERTENSION
     Dosage: UNK
     Route: 048
     Dates: start: 20081208, end: 20090413
  3. CALBLOCK [Concomitant]
     Indication: HYPERTENSION
     Dosage: UNK
     Route: 048
     Dates: start: 20070615, end: 20090713
  4. DEPAS [Concomitant]
     Dosage: UNK
     Route: 048
     Dates: start: 20070226, end: 20090713
  5. ZYLORIC [Concomitant]
     Dosage: UNK
     Route: 048
     Dates: start: 20080701, end: 20090713

REACTIONS (2)
  - DRUG EFFECT INCREASED [None]
  - LOSS OF CONSCIOUSNESS [None]
